FAERS Safety Report 7914162-2 (Version None)
Quarter: 2011Q4

REPORT INFORMATION
  Report Type: 
  Country: None (occurrence: None)
  Receive Date: 20111115
  Receipt Date: 20111115
  Transmission Date: 20120403
  Serious: Yes (Other)
  Sender: FDA-Public Use
  Company Number: None

PATIENT
  Age: 29 Year
  Sex: Female
  Weight: 44.452 kg

DRUGS (1)
  1. MIRENA [Suspect]
     Route: 067

REACTIONS (6)
  - INSOMNIA [None]
  - MIGRAINE [None]
  - FEELING ABNORMAL [None]
  - ECONOMIC PROBLEM [None]
  - THINKING ABNORMAL [None]
  - DEPRESSION [None]
